FAERS Safety Report 9206937 (Version 1)
Quarter: 2013Q2

REPORT INFORMATION
  Report Type: Spontaneous
  Country: US (occurrence: None)
  Receive Date: 20130402
  Receipt Date: 20130402
  Transmission Date: 20140414
  Serious: Yes (Hospitalization)
  Sender: FDA-Public Use
  Company Number: None

PATIENT
  Age: 67 Year
  Sex: Male
  Weight: 88.9 kg

DRUGS (1)
  1. DOCETAXEL (TAXOTERE) [Suspect]

REACTIONS (11)
  - Fatigue [None]
  - Dyspepsia [None]
  - Oxygen saturation decreased [None]
  - Atrial fibrillation [None]
  - Electrocardiogram ST segment depression [None]
  - Heart rate decreased [None]
  - Left ventricular hypertrophy [None]
  - Tricuspid valve incompetence [None]
  - Pulmonary hypertension [None]
  - Snoring [None]
  - Sleep apnoea syndrome [None]
